FAERS Safety Report 7533400-1 (Version None)
Quarter: 2011Q2

REPORT INFORMATION
  Report Type: 
  Country: None (occurrence: None)
  Receive Date: 20110608
  Receipt Date: 20051116
  Transmission Date: 20111010
  Serious: Yes (Hospitalization)
  Sender: FDA-Public Use
  Company Number: PHFR2005GB03639

PATIENT
  Sex: Male

DRUGS (4)
  1. AMISULPRIDE [Concomitant]
     Dosage: 100 MG, BID
     Route: 065
  2. CLOZARIL [Suspect]
     Indication: SCHIZOPHRENIA
     Dosage: UNK, UNK
     Dates: start: 19921001, end: 20051030
  3. LORAZEPAM [Concomitant]
     Dosage: 1 MG, TID
     Route: 065
  4. AMLODIPINE [Concomitant]
     Indication: HYPERTENSION
     Dosage: UNKNOWN

REACTIONS (18)
  - CATATONIA [None]
  - URINARY INCONTINENCE [None]
  - URINARY TRACT INFECTION [None]
  - BLOOD THYROID STIMULATING HORMONE INCREASED [None]
  - CEREBRAL INFARCTION [None]
  - ASTHENIA [None]
  - DEPRESSED LEVEL OF CONSCIOUSNESS [None]
  - GENERAL PHYSICAL HEALTH DETERIORATION [None]
  - C-REACTIVE PROTEIN INCREASED [None]
  - BUNDLE BRANCH BLOCK RIGHT [None]
  - URINARY RETENTION [None]
  - HYPOTHYROIDISM [None]
  - MYOCLONUS [None]
  - UNRESPONSIVE TO STIMULI [None]
  - MUTISM [None]
  - IMMOBILE [None]
  - MUSCLE TWITCHING [None]
  - SINUS ARRHYTHMIA [None]
